FAERS Safety Report 4327800-0 (Version None)
Quarter: 2004Q1

REPORT INFORMATION
  Report Type: 
  Country: None (occurrence: None)
  Receive Date: 20040325
  Receipt Date: 20040309
  Transmission Date: 20041129
  Serious: Yes (Hospitalization)
  Sender: FDA-Public Use
  Company Number: AU-JNJFOC-20040304376

PATIENT
  Age: 82 Year
  Sex: Female

DRUGS (9)
  1. TRAMADOL HCL [Suspect]
     Indication: PAIN
     Dosage: ORAL
     Route: 048
     Dates: start: 20030117
  2. ZOLEDRONATE (ZOLEDRONIC ACID) [Concomitant]
  3. CALCIUM (CALCIUM) [Concomitant]
  4. VITAMIN D [Concomitant]
  5. PRAVASTATIN SODIUM [Concomitant]
  6. ACETYLSALICYLIC ACID SRT [Concomitant]
  7. FOSINOPRIL SODIUM [Concomitant]
  8. FLUDROCORTISONE ACETATE TAB [Concomitant]
  9. LEVOTHYROXINE SODIUM [Concomitant]

REACTIONS (2)
  - DEHYDRATION [None]
  - VOMITING [None]
